FAERS Safety Report 4740613-0 (Version None)
Quarter: 2005Q3

REPORT INFORMATION
  Report Type: 
  Country: None (occurrence: None)
  Receive Date: 20050801
  Receipt Date: 20050523
  Transmission Date: 20060218
  Serious: Yes (Other)
  Sender: FDA-Public Use
  Company Number: 2005-05-1832

PATIENT
  Age: 52 Year
  Sex: Female

DRUGS (2)
  1. INTRON A [Suspect]
     Indication: HEPATITIS C
     Dates: start: 20010101, end: 20020101
  2. REBETOL [Suspect]
     Indication: HEPATITIS C
     Dosage: ORAL
     Route: 048
     Dates: start: 20010101, end: 20020101

REACTIONS (3)
  - ANGER [None]
  - DEPRESSION [None]
  - SUICIDAL IDEATION [None]
